FAERS Safety Report 16625143 (Version 1)
Quarter: 2019Q3

REPORT INFORMATION
  Report Type: Spontaneous
  Country: US (occurrence: US)
  Receive Date: 20190611
  Receipt Date: 20190611
  Transmission Date: 20191004
  Serious: Yes (Hospitalization)
  Sender: FDA-Public Use
  Company Number: None

PATIENT
  Sex: Female

DRUGS (1)
  1. GAMMAGARD [Suspect]
     Active Substance: HUMAN IMMUNOGLOBULIN G
     Indication: HYPOGAMMAGLOBULINAEMIA
     Dosage: ?          OTHER STRENGTH:10GM / 100M;OTHER FREQUENCY:EVERY 3 WEEKS;?
     Route: 042
     Dates: start: 20190122

REACTIONS (3)
  - Dehydration [None]
  - Loss of consciousness [None]
  - Thyroid disorder [None]
